FAERS Safety Report 11086783 (Version 1)
Quarter: 2015Q2

REPORT INFORMATION
  Report Type: Spontaneous
  Country: US (occurrence: US)
  Receive Date: 20150504
  Receipt Date: 20150504
  Transmission Date: 20150821
  Serious: No
  Sender: FDA-Public Use
  Company Number: US-JNJFOC-20150419222

PATIENT
  Sex: Female

DRUGS (3)
  1. DURAGESIC [Suspect]
     Active Substance: FENTANYL
     Indication: PRODUCT USED FOR UNKNOWN INDICATION
     Route: 062
  2. DURAGESIC [Suspect]
     Active Substance: FENTANYL
     Indication: PRODUCT USED FOR UNKNOWN INDICATION
     Route: 062
  3. DURAGESIC [Suspect]
     Active Substance: FENTANYL
     Indication: PRODUCT USED FOR UNKNOWN INDICATION
     Route: 062

REACTIONS (8)
  - Pain [Unknown]
  - Intervertebral disc degeneration [Unknown]
  - Mammogram [Unknown]
  - Adverse event [Unknown]
  - Drug dose omission [Unknown]
  - Osteoporosis [Not Recovered/Not Resolved]
  - Nerve injury [Not Recovered/Not Resolved]
  - Product quality issue [Unknown]
